FAERS Safety Report 7375277-3 (Version None)
Quarter: 2011Q1

REPORT INFORMATION
  Report Type: 
  Country: None (occurrence: None)
  Receive Date: 20110325
  Receipt Date: 20110318
  Transmission Date: 20110831
  Serious: Yes (Death, Hospitalization, Other)
  Sender: FDA-Public Use
  Company Number: JP-ROCHE-767103

PATIENT
  Sex: Male
  Weight: 58 kg

DRUGS (11)
  1. AVASTIN [Suspect]
     Indication: RECTAL CANCER RECURRENT
     Route: 041
     Dates: start: 20100108, end: 20100601
  2. XELODA [Suspect]
     Dosage: IT IS ONE ADMINISTERING WEEKLY HOLIDAY MEDICINE FOR TWO WEEKS.
     Route: 048
     Dates: start: 20100702, end: 20101007
  3. DECADRON [Concomitant]
     Dosage: FORM: PERORAL AGENT
     Route: 048
     Dates: end: 20101101
  4. XELODA [Suspect]
     Indication: RECTAL CANCER RECURRENT
     Dosage: IT IS ONE ADMINISTERING WEEKLY HOLIDAY MEDICINE FOR TWO WEEKS.
     Route: 048
     Dates: start: 20100108, end: 20100601
  5. TAKEPRON [Concomitant]
     Route: 048
     Dates: end: 20101101
  6. AVASTIN [Suspect]
     Route: 041
     Dates: start: 20100702, end: 20101007
  7. MAGMITT [Concomitant]
     Route: 048
     Dates: end: 20101101
  8. GABAPEN [Concomitant]
     Route: 048
     Dates: end: 20101101
  9. ELPLAT [Concomitant]
     Route: 041
     Dates: start: 20100702, end: 20101007
  10. PANTOSIN [Concomitant]
     Route: 048
     Dates: end: 20101101
  11. OXYCONTIN [Concomitant]
     Route: 048
     Dates: end: 20101101

REACTIONS (4)
  - PNEUMONIA BACTERIAL [None]
  - DISEASE PROGRESSION [None]
  - HYPERAMMONAEMIA [None]
  - PALMAR-PLANTAR ERYTHRODYSAESTHESIA SYNDROME [None]
